FAERS Safety Report 9259921 (Version 2)
Quarter: 2013Q2

REPORT INFORMATION
  Report Type: Spontaneous
  Country: GR (occurrence: GR)
  Receive Date: 20130429
  Receipt Date: 20130517
  Transmission Date: 20140414
  Serious: Yes (Hospitalization)
  Sender: FDA-Public Use
  Company Number: GR-009507513-1304GRC015792

PATIENT
  Age: 30 Year
  Sex: Male

DRUGS (9)
  1. NITRO-DYL [Suspect]
     Indication: HYPERTENSIVE CRISIS
     Route: 042
  2. CLONIDINE [Concomitant]
     Indication: HYPERTENSIVE CRISIS
  3. NIFEDIPINE [Concomitant]
     Indication: HYPERTENSIVE CRISIS
  4. TERAZOSIN HYDROCHLORIDE [Concomitant]
     Indication: HYPERTENSIVE CRISIS
  5. VALSARTAN [Concomitant]
     Indication: HYPERTENSIVE CRISIS
  6. ESMOLOL HYDROCHLORIDE [Concomitant]
     Indication: BLOOD PRESSURE FLUCTUATION
     Dosage: UPTO 200 MG/H
  7. CARVEDILOL [Concomitant]
     Indication: BLOOD PRESSURE FLUCTUATION
     Dosage: 12.25 MG, QD
  8. SODIUM NITROPRUSSIDE [Concomitant]
     Indication: BLOOD PRESSURE FLUCTUATION
     Dosage: UPTO 8 MG/KG/MIN
  9. PHENTOLAMINE HYDROCHLORIDE [Concomitant]
     Indication: BLOOD PRESSURE FLUCTUATION
     Dosage: UPTO 300 MG/H

REACTIONS (1)
  - Posterior reversible encephalopathy syndrome [Unknown]
